FAERS Safety Report 5507416-0 (Version None)
Quarter: 2007Q4

REPORT INFORMATION
  Report Type: 
  Country: None (occurrence: None)
  Receive Date: 20071024
  Receipt Date: 20070221
  Transmission Date: 20080405
  Serious: Yes (Other)
  Sender: FDA-Public Use
  Company Number: US-JNJFOC-20070205343

PATIENT
  Age: 76 Year
  Sex: Female

DRUGS (3)
  1. FLEXERIL [Suspect]
     Indication: DRUG USE FOR UNKNOWN INDICATION
  2. CELEXA [Concomitant]
  3. OTHER UNSPECIFIED MEDICATIONS (ALL OTHER THERAPEUTIC PRODUCTS) [Concomitant]

REACTIONS (1)
  - CONFUSIONAL STATE [None]
